FAERS Safety Report 23666815 (Version 1)
Quarter: 2024Q1

REPORT INFORMATION
  Report Type: Spontaneous
  Country: BE (occurrence: BE)
  Receive Date: 20240325
  Receipt Date: 20240325
  Transmission Date: 20240410
  Serious: Yes (Hospitalization, Other)
  Sender: FDA-Public Use
  Company Number: BE-BRISTOL-MYERS SQUIBB COMPANY-2024-043569

PATIENT
  Sex: Male

DRUGS (1)
  1. OZANIMOD [Suspect]
     Active Substance: OZANIMOD
     Indication: Multiple sclerosis
     Dates: start: 20240301, end: 20240314

REACTIONS (5)
  - Pneumonia [Recovering/Resolving]
  - Hypotension [Recovering/Resolving]
  - Hepatic enzyme increased [Recovering/Resolving]
  - Abnormal clotting factor [Recovering/Resolving]
  - Rash [Recovering/Resolving]

NARRATIVE: CASE EVENT DATE: 20240312
